FAERS Safety Report 8388041-3 (Version None)
Quarter: 2012Q2

REPORT INFORMATION
  Report Type: 
  Country: None (occurrence: None)
  Receive Date: 20120525
  Receipt Date: 20120515
  Transmission Date: 20120825
  Serious: Yes (Other)
  Sender: FDA-Public Use
  Company Number: US-ELI_LILLY_AND_COMPANY-US201205005950

PATIENT
  Sex: Male

DRUGS (2)
  1. CIALIS [Suspect]
     Dosage: 5 MG, UNK
  2. CIALIS [Suspect]
     Dosage: 20 MG, PRN

REACTIONS (2)
  - SURGERY [None]
  - DRUG INEFFECTIVE [None]
